FAERS Safety Report 9034223 (Version 1)
Quarter: 2013Q1

REPORT INFORMATION
  Report Type: Spontaneous
  Country: US (occurrence: None)
  Receive Date: 20130116
  Receipt Date: 20130116
  Transmission Date: 20140127
  Serious: Yes (Other)
  Sender: FDA-Public Use
  Company Number: None

PATIENT
  Age: 59 Year
  Sex: Male
  Weight: 51.3 kg

DRUGS (1)
  1. HYDRALAZINE [Suspect]

REACTIONS (9)
  - Heart rate increased [None]
  - Vomiting [None]
  - Nausea [None]
  - Dehydration [None]
  - Pain [None]
  - Restlessness [None]
  - Dizziness [None]
  - Chills [None]
  - Flushing [None]
